FAERS Safety Report 6982593-3 (Version None)
Quarter: 2010Q3

REPORT INFORMATION
  Report Type: 
  Country: None (occurrence: None)
  Receive Date: 20100914
  Receipt Date: 20100224
  Transmission Date: 20110219
  Serious: No
  Sender: FDA-Public Use
  Company Number: US-PFIZER INC-2010024338

PATIENT
  Sex: Female
  Weight: 70.3 kg

DRUGS (2)
  1. LYRICA [Suspect]
     Indication: MUSCULOSKELETAL STIFFNESS
     Dosage: 150 MG, 2X/DAY
     Route: 048
     Dates: start: 20091201
  2. LYRICA [Suspect]

REACTIONS (1)
  - WEIGHT INCREASED [None]
